FAERS Safety Report 6831849-3 (Version None)
Quarter: 2010Q3

REPORT INFORMATION
  Report Type: 
  Country: None (occurrence: None)
  Receive Date: 20100712
  Receipt Date: 20100630
  Transmission Date: 20110219
  Serious: Yes (Other)
  Sender: FDA-Public Use
  Company Number: BR-PFIZER INC-2010077062

PATIENT
  Sex: Female

DRUGS (1)
  1. XALATAN [Suspect]
     Indication: GLAUCOMA
     Dosage: 1 DROP IN EACH EYE AT NIGHT
     Route: 047

REACTIONS (4)
  - BLINDNESS TRANSIENT [None]
  - EXPIRED DRUG ADMINISTERED [None]
  - HYPERTENSION [None]
  - OCULAR HYPERAEMIA [None]
